FAERS Safety Report 18487134 (Version 3)
Quarter: 2021Q3

REPORT INFORMATION
  Report Type: Spontaneous
  Country: IN (occurrence: IN)
  Receive Date: 20201110
  Receipt Date: 20210820
  Transmission Date: 20211014
  Serious: Yes (Hospitalization)
  Sender: FDA-Public Use
  Company Number: IN-PFIZER INC-2020439321

PATIENT
  Age: 24 Year
  Sex: Female

DRUGS (10)
  1. ULTRACET [Concomitant]
     Active Substance: ACETAMINOPHEN\TRAMADOL HYDROCHLORIDE
     Indication: PAIN
     Dosage: UNK
  2. LETROZOLE. [Concomitant]
     Active Substance: LETROZOLE
     Dosage: 2.5 MG, 1X/DAY (PO OD X 3 MONTHS)
     Route: 048
  3. TAYO [COLECALCIFEROL] [Concomitant]
     Dosage: 60 KI ONCE EVERY 2 WEEKS (FOR 28 DAYS)
  4. TAYO [COLECALCIFEROL] [Concomitant]
     Dosage: 60 K ONCE EVERY 2 WEEKS X 3 MONTHS
  5. THYRONORM [Concomitant]
     Active Substance: LEVOTHYROXINE
     Dosage: 25 UG, 1X/DAY (FOR 28 DAYS)
  6. SHELCAL [CALCIUM CARBONATE;COLECALCIFEROL] [Concomitant]
     Dosage: 500 MG, 2X/DAY (3 MONTHS)
  7. PALBACE [Suspect]
     Active Substance: PALBOCICLIB
     Indication: BREAST CANCER METASTATIC
     Dosage: 125 MG, 1X/DAY
     Route: 048
     Dates: start: 20200811
  8. PALBACE [Suspect]
     Active Substance: PALBOCICLIB
     Dosage: 125 MG ONCE A DAY , CYCLIC (21 DAYS FOLLOWED BY GAP OF 7 DAYS)
  9. LETROZOLE. [Concomitant]
     Active Substance: LETROZOLE
     Dosage: 2.5 MG, 1X/DAY (FOR 28 DAYS )
  10. XGEVA [Concomitant]
     Active Substance: DENOSUMAB

REACTIONS (5)
  - Weight increased [Unknown]
  - Fatigue [Unknown]
  - Malaise [Unknown]
  - Pain in extremity [Unknown]
  - Nausea [Unknown]
